FAERS Safety Report 24864260 (Version 2)
Quarter: 2025Q1

REPORT INFORMATION
  Report Type: Spontaneous
  Country: US (occurrence: US)
  Receive Date: 20250120
  Receipt Date: 20250226
  Transmission Date: 20250408
  Serious: Yes (Death)
  Sender: DOMPE FARMACEUTICI
  Company Number: US-FARMAPROD-202501-0122

PATIENT
  Age: 56 Year
  Sex: Female

DRUGS (42)
  1. OXERVATE [Suspect]
     Active Substance: CENEGERMIN-BKBJ
     Indication: Neurotrophic keratopathy
     Route: 047
     Dates: start: 20241123
  2. HUMALOG [Concomitant]
     Active Substance: INSULIN LISPRO
  3. METOLAZONE [Concomitant]
     Active Substance: METOLAZONE
  4. METOLAZONE [Concomitant]
     Active Substance: METOLAZONE
     Route: 048
  5. OMEGA 3 [Concomitant]
     Active Substance: CAPSAICIN
  6. RESTASIS [Concomitant]
     Active Substance: CYCLOSPORINE
  7. FARXIGA [Concomitant]
     Active Substance: DAPAGLIFLOZIN PROPANEDIOL
     Route: 048
  8. DOXYCYCLINE HYCLATE [Concomitant]
     Active Substance: DOXYCYCLINE HYCLATE
  9. DOXYCYCLINE HYCLATE [Concomitant]
     Active Substance: DOXYCYCLINE HYCLATE
     Route: 048
  10. BUPROPION [Concomitant]
     Active Substance: BUPROPION
  11. BUPROPION [Concomitant]
     Active Substance: BUPROPION
  12. SPIRONOLACTONE [Concomitant]
     Active Substance: SPIRONOLACTONE
     Route: 048
  13. ASPIRIN [Concomitant]
     Active Substance: ASPIRIN
  14. CHLORPHENIRAMINE MALEATE [Concomitant]
     Active Substance: CHLORPHENIRAMINE MALEATE
  15. OMEPRAZOLE [Concomitant]
     Active Substance: OMEPRAZOLE
  16. POTASSIUM CHLORIDE [Concomitant]
     Active Substance: POTASSIUM CHLORIDE
  17. POTASSIUM CHLORIDE [Concomitant]
     Active Substance: POTASSIUM CHLORIDE
  18. POTASSIUM CHLORIDE [Concomitant]
     Active Substance: POTASSIUM CHLORIDE
  19. TORSEMIDE [Concomitant]
     Active Substance: TORSEMIDE
     Route: 048
  20. TORSEMIDE [Concomitant]
     Active Substance: TORSEMIDE
     Route: 048
  21. GABAPENTIN [Concomitant]
     Active Substance: GABAPENTIN
  22. ELIQUIS [Concomitant]
     Active Substance: APIXABAN
     Route: 048
  23. LOPERAMIDE [Concomitant]
     Active Substance: LOPERAMIDE
  24. ZOLOFT [Concomitant]
     Active Substance: SERTRALINE HYDROCHLORIDE
  25. ATORVASTATIN CALCIUM [Concomitant]
     Active Substance: ATORVASTATIN CALCIUM
  26. LANTUS SOLOSTAR [Concomitant]
     Active Substance: INSULIN GLARGINE
     Route: 058
  27. LANTUS SOLOSTAR [Concomitant]
     Active Substance: INSULIN GLARGINE
     Route: 058
  28. XARELTO [Concomitant]
     Active Substance: RIVAROXABAN
     Route: 048
  29. XARELTO [Concomitant]
     Active Substance: RIVAROXABAN
  30. ENTRESTO [Concomitant]
     Active Substance: SACUBITRIL\VALSARTAN
     Dosage: 24-26 MG
  31. TRIFLURIDINE [Concomitant]
     Active Substance: TRIFLURIDINE
  32. VALACYCLOVIR [Concomitant]
     Active Substance: VALACYCLOVIR HYDROCHLORIDE
     Route: 048
  33. OXYCODONE [Concomitant]
     Active Substance: OXYCODONE
     Indication: Pain
  34. OXYCODONE [Concomitant]
     Active Substance: OXYCODONE
     Route: 048
  35. OXYCODONE [Concomitant]
     Active Substance: OXYCODONE
  36. MIDODRINE HYDROCHLORIDE [Concomitant]
     Active Substance: MIDODRINE HYDROCHLORIDE
     Route: 048
  37. METOPROLOL [Concomitant]
     Active Substance: METOPROLOL
     Route: 048
  38. BUMETANIDE [Concomitant]
     Active Substance: BUMETANIDE
     Route: 048
  39. SERTRALINE HYDROCHLORIDE [Concomitant]
     Active Substance: SERTRALINE HYDROCHLORIDE
  40. LEVOTHYROXINE [Concomitant]
     Active Substance: LEVOTHYROXINE
  41. CYCLOBENZAPRINE HYDROCHLORIDE [Concomitant]
     Active Substance: CYCLOBENZAPRINE HYDROCHLORIDE
     Route: 048
  42. LISINOPRIL [Concomitant]
     Active Substance: LISINOPRIL
     Route: 048

REACTIONS (1)
  - Death [Fatal]

NARRATIVE: CASE EVENT DATE: 20241126
